FAERS Safety Report 25440498 (Version 1)
Quarter: 2025Q2

REPORT INFORMATION
  Report Type: Spontaneous
  Country: US (occurrence: None)
  Receive Date: 20250616
  Receipt Date: 20250616
  Transmission Date: 20250717
  Serious: Yes (Life-Threatening, Hospitalization, Disabling)
  Sender: FDA-CTU
  Company Number: None

PATIENT
  Age: 21 Year
  Sex: Male
  Weight: 63 kg

DRUGS (1)
  1. TIANEPTINE [Suspect]
     Active Substance: TIANEPTINE
     Indication: Depression
     Route: 050

REACTIONS (11)
  - Drug tolerance [None]
  - Product communication issue [None]
  - Loss of consciousness [None]
  - Respiratory arrest [None]
  - Agonal respiration [None]
  - Oxygen saturation decreased [None]
  - Pulmonary oedema [None]
  - Hepatic enzyme increased [None]
  - Withdrawal syndrome [None]
  - Drug dependence [None]
  - Quality of life decreased [None]

NARRATIVE: CASE EVENT DATE: 20151203
